FAERS Safety Report 5602420-6 (Version None)
Quarter: 2008Q1

REPORT INFORMATION
  Report Type: 
  Country: None (occurrence: None)
  Receive Date: 20080122
  Receipt Date: 20080114
  Transmission Date: 20080703
  Serious: Yes (Other)
  Sender: FDA-Public Use
  Company Number: 163-21880-08010889

PATIENT
  Sex: Female

DRUGS (1)
  1. REVLIMID [Suspect]
     Indication: MULTIPLE MYELOMA
     Dosage: 10 MG, DAILY X21 DAYS AS DIRECTED, ORAL; 5MG, FOR 21 DAYS, ORAL
     Route: 048
     Dates: start: 20071114, end: 20080109

REACTIONS (2)
  - BRONCHITIS [None]
  - CONVULSION [None]
